FAERS Safety Report 9601356 (Version 1)
Quarter: 2013Q4

REPORT INFORMATION
  Report Type: Spontaneous
  Country: US (occurrence: US)
  Receive Date: 20131007
  Receipt Date: 20131007
  Transmission Date: 20140711
  Serious: No
  Sender: FDA-Public Use
  Company Number: US-009507513-1310USA000903

PATIENT
  Age: 63 Year
  Sex: Male

DRUGS (1)
  1. JANUMET [Suspect]
     Indication: TYPE 2 DIABETES MELLITUS
     Dosage: 50/500, BID
     Route: 048
     Dates: start: 201211

REACTIONS (2)
  - Blood glucose increased [Unknown]
  - Product quality issue [Unknown]
